FAERS Safety Report 9939826 (Version 1)
Quarter: 2014Q1

REPORT INFORMATION
  Report Type: Report from Study
  Country: US (occurrence: US)
  Receive Date: 20140303
  Receipt Date: 20140303
  Transmission Date: 20141002
  Serious: No
  Sender: FDA-Public Use
  Company Number: US-ABBVIE-13P-163-1034804-00

PATIENT
  Sex: Male
  Weight: 88.53 kg

DRUGS (7)
  1. HUMIRA PEN [Suspect]
     Indication: PSORIASIS
     Dates: start: 20121015
  2. SIMVASTATIN [Concomitant]
     Indication: BLOOD CHOLESTEROL ABNORMAL
  3. ENALAPRIL [Concomitant]
     Indication: BLOOD PRESSURE ABNORMAL
  4. ASPIRIN [Concomitant]
     Indication: PROPHYLAXIS
  5. ZANTAC [Concomitant]
     Indication: DYSPEPSIA
  6. RESTORIL [Concomitant]
     Indication: INSOMNIA
  7. DIAZEPAM [Concomitant]
     Indication: STRESS

REACTIONS (3)
  - Rhinorrhoea [Not Recovered/Not Resolved]
  - Cough [Not Recovered/Not Resolved]
  - Fatigue [Recovered/Resolved]
